FAERS Safety Report 5201633-5 (Version None)
Quarter: 2006Q4

REPORT INFORMATION
  Report Type: 
  Country: None (occurrence: None)
  Receive Date: 20061006
  Receipt Date: 20050907
  Transmission Date: 20070319
  Serious: Yes (Other)
  Sender: FDA-Public Use
  Company Number: 200511725BWH

PATIENT
  Age: 36 Year
  Sex: Female
  Weight: 54.4316 kg

DRUGS (2)
  1. CIPROFLOXACIN [Suspect]
     Indication: KIDNEY INFECTION
     Dosage: ORAL
     Route: 048
     Dates: start: 20050817
  2. BIRTH CONTROL PATCH [Concomitant]

REACTIONS (3)
  - ASTHENIA [None]
  - GAIT DISTURBANCE [None]
  - HYPOAESTHESIA [None]
